FAERS Safety Report 7300978-2 (Version None)
Quarter: 2011Q1

REPORT INFORMATION
  Report Type: 
  Country: None (occurrence: None)
  Receive Date: 20110218
  Receipt Date: 20110207
  Transmission Date: 20110831
  Serious: Yes (Other)
  Sender: FDA-Public Use
  Company Number: US-BAXTER-2011BH003853

PATIENT
  Age: 46 Year
  Sex: Female

DRUGS (4)
  1. MITOXANTRONE GENERIC [Suspect]
     Indication: LYMPHOCYTIC LYMPHOMA
     Route: 065
  2. FLUDARA [Suspect]
     Indication: LYMPHOCYTIC LYMPHOMA
     Route: 065
  3. RITUXIMAB [Suspect]
     Indication: LYMPHOCYTIC LYMPHOMA
     Route: 065
  4. DEXAMETHASONE [Suspect]
     Indication: LYMPHOCYTIC LYMPHOMA
     Route: 065

REACTIONS (1)
  - ACUTE PROMYELOCYTIC LEUKAEMIA [None]
